FAERS Safety Report 5494122-4 (Version None)
Quarter: 2007Q4

REPORT INFORMATION
  Report Type: 
  Country: None (occurrence: None)
  Receive Date: 20071022
  Receipt Date: 20071005
  Transmission Date: 20080405
  Serious: Yes (Hospitalization, Other)
  Sender: FDA-Public Use
  Company Number: TRP_00990_2007

PATIENT
  Sex: Female
  Weight: 46.2669 kg

DRUGS (18)
  1. RIBASPHERE [Suspect]
     Indication: HEPATITIS C
     Dosage: 400 MG BID ORAL
     Route: 048
     Dates: start: 20070822, end: 20070915
  2. PEG-INTRON [Suspect]
     Indication: HEPATITIS C
     Dosage: 64 ?G 1X/WEEK SUBCUTANEOUS
     Route: 058
     Dates: start: 20070822, end: 20070912
  3. EXCEDRIN (MIGRAINE) [Suspect]
     Indication: DRUG USE FOR UNKNOWN INDICATION
     Dosage: 200 TABLETS OVER 30 DAYS OR SO ORAL
     Route: 048
     Dates: start: 20070823, end: 20070924
  4. ADDERALL 10 [Concomitant]
  5. LUNESTA [Concomitant]
  6. ASCORBIC ACID [Concomitant]
  7. METAMUCIL [Concomitant]
  8. PEPCID AC [Concomitant]
  9. CALCIUM [Concomitant]
  10. MOTRIN [Concomitant]
  11. VITAMIN CAP [Concomitant]
  12. LACTAID [Concomitant]
  13. MECLIZINE [Concomitant]
  14. PAACETAMOL [Concomitant]
  15. MOTRIN [Concomitant]
  16. ACIDOPHILUS [Concomitant]
  17. FLUOXETINE [Concomitant]
  18. MIDRIN [Concomitant]

REACTIONS (10)
  - BLOOD GLUCOSE INCREASED [None]
  - DEHYDRATION [None]
  - DEPRESSION [None]
  - EOSINOPHIL COUNT DECREASED [None]
  - HAEMATOCRIT DECREASED [None]
  - MIGRAINE [None]
  - OVERDOSE [None]
  - REBOUND EFFECT [None]
  - RED BLOOD CELL COUNT DECREASED [None]
  - SUICIDAL IDEATION [None]
